FAERS Safety Report 7728910-8 (Version None)
Quarter: 2011Q3

REPORT INFORMATION
  Report Type: 
  Country: None (occurrence: None)
  Receive Date: 20110831
  Receipt Date: 20110831
  Transmission Date: 20111222
  Serious: Yes (Other)
  Sender: FDA-Public Use
  Company Number: None

PATIENT
  Age: 36 Year
  Sex: Female
  Weight: 63.5036 kg

DRUGS (1)
  1. CIMZIA [Suspect]
     Indication: HERPES VIRUS INFECTION
     Dosage: 400 MG EVERY 4 WEEKS INJECT.
     Dates: start: 20101101, end: 20110201

REACTIONS (1)
  - HERPES VIRUS INFECTION [None]
